FAERS Safety Report 8110532-0 (Version None)
Quarter: 2012Q1

REPORT INFORMATION
  Report Type: 
  Country: None (occurrence: None)
  Receive Date: 20120203
  Receipt Date: 20120124
  Transmission Date: 20120608
  Serious: Yes (Other)
  Sender: FDA-Public Use
  Company Number: MA-BRISTOL-MYERS SQUIBB COMPANY-16367880

PATIENT
  Age: 68 Year
  Sex: Female

DRUGS (5)
  1. SIMVASTATIN [Suspect]
     Dosage: NOCOL 20 MG 1 TAB FOR DAY
     Dates: start: 20110201, end: 20110901
  2. IRBESARTAN + HYDROCHLOROTHIAZIDE [Suspect]
     Indication: HYPERTENSION
     Dosage: INITIAL 300/12.5, PASSAGE TO 300/25
     Route: 048
     Dates: start: 20101101
  3. ASPIRIN [Suspect]
  4. ASPIRIN [Suspect]
     Dates: start: 20101101
  5. GLUCOPHAGE [Suspect]
     Indication: TYPE 2 DIABETES MELLITUS
     Route: 048
     Dates: start: 20101101

REACTIONS (1)
  - PANCYTOPENIA [None]
